FAERS Safety Report 5360265-9 (Version None)
Quarter: 2007Q2

REPORT INFORMATION
  Report Type: 
  Country: None (occurrence: None)
  Receive Date: 20070618
  Receipt Date: 20070607
  Transmission Date: 20071010
  Serious: Yes (Death, Life-Threatening)
  Sender: FDA-Public Use
  Company Number: CA-NOVOPROD-262913

PATIENT
  Sex: Female
  Weight: 60 kg

DRUGS (7)
  1. AERX SOLUTION 2.6 MG/STRIP [Suspect]
     Indication: DIABETES MELLITUS INSULIN-DEPENDENT
     Dosage: 16 IU, QD
     Route: 055
     Dates: start: 20070221
  2. AERX SOLUTION 2.6 MG/STRIP [Suspect]
     Dosage: 8 U, QD
     Route: 055
     Dates: end: 20070504
  3. INSULIN DETEMIR FLEXPEN [Suspect]
     Indication: DIABETES MELLITUS INSULIN-DEPENDENT
     Dosage: 13 U, QD
     Route: 058
     Dates: start: 20070221
  4. INSULIN DETEMIR FLEXPEN [Suspect]
     Dosage: 19 U, QD
     Route: 058
     Dates: end: 20070504
  5. RAMIPRIL [Concomitant]
     Indication: HYPERTENSION
     Dosage: 10 MG, QD
     Route: 048
     Dates: start: 20040901
  6. GLUCOSAMINE SULFATE [Concomitant]
     Indication: ARTHROPATHY
     Dosage: 500 MG, QD
     Route: 048
     Dates: start: 20040101
  7. MULTIVITAMIN                       /00831701/ [Concomitant]
     Indication: SUPPLEMENTATION THERAPY
     Dosage: 1 CAPS, QD
     Route: 048
     Dates: start: 19970101

REACTIONS (2)
  - DEATH [None]
  - HYPOGLYCAEMIA [None]
